FAERS Safety Report 11831380 (Version 2)
Quarter: 2015Q4

REPORT INFORMATION
  Report Type: Spontaneous
  Country: US (occurrence: US)
  Receive Date: 20151214
  Receipt Date: 20151230
  Transmission Date: 20160305
  Serious: Yes (Death, Other)
  Sender: FDA-Public Use
  Company Number: US-009507513-1512USA006540

PATIENT
  Age: 63 Year
  Sex: Male

DRUGS (1)
  1. KEYTRUDA [Suspect]
     Active Substance: PEMBROLIZUMAB
     Indication: MALIGNANT MELANOMA
     Dosage: 100 MG, ONCE MONTHLY
     Route: 042
     Dates: start: 201502

REACTIONS (2)
  - Cerebral haemorrhage [Fatal]
  - Drug ineffective [Unknown]

NARRATIVE: CASE EVENT DATE: 2015
